FAERS Safety Report 10190084 (Version 1)
Quarter: 2014Q2

REPORT INFORMATION
  Report Type: Spontaneous
  Country: US (occurrence: US)
  Receive Date: 20140522
  Receipt Date: 20140522
  Transmission Date: 20141212
  Serious: Yes (Other)
  Sender: FDA-Public Use
  Company Number: US-AMGEN-USASP2014036935

PATIENT
  Age: 51 Year
  Sex: Female

DRUGS (2)
  1. ENBREL [Suspect]
     Indication: SJOGREN^S SYNDROME
     Dosage: 50 MG, QWK
     Route: 065
     Dates: start: 201311
  2. ENBREL [Suspect]
     Indication: POLYARTHRITIS

REACTIONS (12)
  - Pneumonia [Recovered/Resolved]
  - Mental impairment [Recovered/Resolved]
  - Dermal cyst [Recovered/Resolved]
  - Joint stiffness [Not Recovered/Not Resolved]
  - Musculoskeletal stiffness [Not Recovered/Not Resolved]
  - Mobility decreased [Not Recovered/Not Resolved]
  - Pain [Not Recovered/Not Resolved]
  - Condition aggravated [Recovered/Resolved]
  - Burnout syndrome [Recovered/Resolved]
  - Arthralgia [Recovered/Resolved]
  - Blood glucose increased [Not Recovered/Not Resolved]
  - Hypertension [Not Recovered/Not Resolved]
